FAERS Safety Report 7102921-8 (Version None)
Quarter: 2010Q4

REPORT INFORMATION
  Report Type: 
  Country: None (occurrence: None)
  Receive Date: 20101108
  Receipt Date: 20101022
  Transmission Date: 20110411
  Serious: Yes (Other)
  Sender: FDA-Public Use
  Company Number: 1000016537

PATIENT
  Age: 68 Year
  Sex: Male
  Weight: 80 kg

DRUGS (4)
  1. MILNACIPRAN (MILNACIPRAN HYDROCHLORIDE) (CAPSULES) [Suspect]
     Indication: DEPRESSION
     Dosage: 25 MG (25 MG,1 IN 1 D),ORAL
     Route: 048
     Dates: start: 20100817, end: 20100819
  2. METOPROLOL TARTRATE [Concomitant]
  3. UROFLO (TERAZOSIN HYDROCHLORIDE) (TABLETS) (TERAZOSIN HYDROCHLORIDE) [Concomitant]
  4. DIABETEX (METFORMIN HYDROCHLORIDE) (METFORMIN HYDROCHLORIDE) [Concomitant]

REACTIONS (3)
  - DYSURIA [None]
  - POLLAKIURIA [None]
  - URINARY RETENTION [None]
